FAERS Safety Report 5453709-5 (Version None)
Quarter: 2007Q3

REPORT INFORMATION
  Report Type: 
  Country: None (occurrence: None)
  Receive Date: 20070917
  Receipt Date: 20070911
  Transmission Date: 20080115
  Serious: Yes (Hospitalization, Other)
  Sender: FDA-Public Use
  Company Number: AU-AVENTIS-200718351GDDC

PATIENT
  Age: 69 Year
  Sex: Female

DRUGS (4)
  1. LANTUS [Suspect]
     Route: 058
     Dates: start: 20060518
  2. AUTOPEN INSULIN INJECTION PEN [Suspect]
     Route: 058
  3. ZOCOR [Concomitant]
  4. DIAMICRON [Concomitant]

REACTIONS (3)
  - BLOOD GLUCOSE FLUCTUATION [None]
  - DEHYDRATION [None]
  - VOMITING [None]
